FAERS Safety Report 10917860 (Version 4)
Quarter: 2015Q2

REPORT INFORMATION
  Report Type: Spontaneous
  Country: US (occurrence: IT)
  Receive Date: 20150316
  Receipt Date: 20150505
  Transmission Date: 20150821
  Serious: Yes (Disabling)
  Sender: FDA-Public Use
  Company Number: IT-FRI-1000074982

PATIENT
  Age: 50 Year
  Sex: Female
  Weight: 60 kg

DRUGS (13)
  1. ASENAPINE [Suspect]
     Active Substance: ASENAPINE
     Indication: BIPOLAR I DISORDER
     Dosage: 5 MG
     Route: 060
     Dates: start: 20141017, end: 20141017
  2. ASENAPINE [Suspect]
     Active Substance: ASENAPINE
     Dosage: 10 MG
     Route: 060
     Dates: start: 20141018, end: 20141018
  3. ZIPRASIDONE [Suspect]
     Active Substance: ZIPRASIDONE
     Indication: BIPOLAR DISORDER
     Dosage: 80 MG
     Route: 048
     Dates: start: 20120204, end: 20131204
  4. CARBOLITHIUM [Concomitant]
     Active Substance: LITHIUM CARBONATE
     Indication: BIPOLAR I DISORDER
     Dosage: 900 MG
     Route: 048
     Dates: end: 20141218
  5. RIVOTRIL [Concomitant]
     Active Substance: CLONAZEPAM
     Indication: INSOMNIA
     Dates: start: 20120801, end: 20150115
  6. ASENAPINE [Suspect]
     Active Substance: ASENAPINE
     Dosage: 10 MG
     Route: 048
     Dates: start: 2015
  7. AKINETON [Concomitant]
     Active Substance: BIPERIDEN HYDROCHLORIDE
     Dosage: 4 MG
  8. ZIPRASIDONE [Suspect]
     Active Substance: ZIPRASIDONE
     Dosage: 40 MG
     Route: 048
     Dates: start: 20130220, end: 20131003
  9. CARBOLITHIUM [Concomitant]
     Active Substance: LITHIUM CARBONATE
     Dosage: 1050 MG
     Route: 048
     Dates: start: 20141219
  10. ABILIFY [Suspect]
     Active Substance: ARIPIPRAZOLE
     Indication: BIPOLAR I DISORDER
     Dosage: 15 MG (ALSO REPORTED AS 20MG/DIE)
     Route: 048
     Dates: start: 20131204, end: 20141016
  11. ASENAPINE [Suspect]
     Active Substance: ASENAPINE
     Dosage: 15 MG
     Route: 048
     Dates: start: 201502
  12. ASENAPINE [Suspect]
     Active Substance: ASENAPINE
     Dosage: 20 MG
     Route: 048
     Dates: start: 20141019, end: 20150228
  13. AKINETON [Concomitant]
     Active Substance: BIPERIDEN HYDROCHLORIDE
     Dosage: 8 MG

REACTIONS (9)
  - Cerebral atrophy [Unknown]
  - Movement disorder [Unknown]
  - Apathy [Unknown]
  - Underdose [Unknown]
  - Dysstasia [Recovered/Resolved]
  - Polyuria [Unknown]
  - Incorrect route of drug administration [Unknown]
  - Product quality issue [Unknown]
  - Parkinsonism [Recovering/Resolving]

NARRATIVE: CASE EVENT DATE: 20131003
